FAERS Safety Report 4315231-9 (Version None)
Quarter: 2004Q1

REPORT INFORMATION
  Report Type: 
  Country: None (occurrence: None)
  Receive Date: 20040309
  Receipt Date: 20040225
  Transmission Date: 20041129
  Serious: No
  Sender: FDA-Public Use
  Company Number: NSADSS2002022214

PATIENT
  Sex: Female

DRUGS (3)
  1. INFLIXIMAB (INFLIXIMAB, RECOMBINANT) [Suspect]
     Indication: RHEUMATOID ARTHRITIS
     Dosage: 3 MG/KG, 1 IN 1 TOTAL
  2. LEFLUNOMIDE            (LEFLUNOMIDE) [Suspect]
  3. METHOTREXATE [Concomitant]

REACTIONS (1)
  - PARAPSORIASIS [None]
